FAERS Safety Report 5806892-3 (Version None)
Quarter: 2008Q3

REPORT INFORMATION
  Report Type: 
  Country: None (occurrence: None)
  Receive Date: 20080711
  Receipt Date: 20080701
  Transmission Date: 20090109
  Serious: Yes (Hospitalization, Other)
  Sender: FDA-Public Use
  Company Number: US-ROCHE-573386

PATIENT
  Age: 61 Year
  Sex: Male
  Weight: 112.9 kg

DRUGS (7)
  1. PEGASYS [Suspect]
     Indication: HEPATITIS C
     Route: 065
     Dates: start: 20080507, end: 20080626
  2. RIBAVIRIN [Suspect]
     Indication: HEPATITIS C
     Route: 065
     Dates: start: 20080507, end: 20080626
  3. SPIRONOLACTONE [Suspect]
     Indication: HYPERTENSION
     Route: 065
     Dates: end: 20080626
  4. METOPROLOL [Suspect]
     Indication: HYPERTENSION
     Route: 065
     Dates: end: 20080626
  5. LISINOPRIL [Concomitant]
     Indication: HYPERTENSION
     Dosage: DRUG: LISINOPRIL/HCTZ
  6. UNKNOWN HYPERTENSION DRUG [Concomitant]
     Dosage: DRUG: MULTIPLE HYPERTENSIVE MEDICINES
  7. LEVALBUTEROL HCL [Concomitant]
     Dosage: DRUG: LEVABUTEROL INHALER

REACTIONS (10)
  - APHASIA [None]
  - CONFUSIONAL STATE [None]
  - DEHYDRATION [None]
  - DYSPNOEA [None]
  - GINGIVAL SWELLING [None]
  - GLOSSODYNIA [None]
  - LOSS OF CONSCIOUSNESS [None]
  - NEUROLOGICAL SYMPTOM [None]
  - OROPHARYNGEAL PAIN [None]
  - PANIC ATTACK [None]
